FAERS Safety Report 10548241 (Version 4)
Quarter: 2015Q1

REPORT INFORMATION
  Report Type: Spontaneous
  Country: CA (occurrence: CA)
  Receive Date: 20141028
  Receipt Date: 20150227
  Transmission Date: 20150720
  Serious: Yes (Other)
  Sender: FDA-Public Use
  Company Number: CA-JNJFOC-20131113479

PATIENT
  Age: 75 Year
  Sex: Female
  Weight: 63.5 kg

DRUGS (2)
  1. NICORETTE [Concomitant]
     Active Substance: NICOTINE
     Indication: SMOKING CESSATION THERAPY
     Route: 002
  2. NICORETTE [Suspect]
     Active Substance: NICOTINE
     Indication: SMOKING CESSATION THERAPY
     Dosage: 1 OR 2 PIECES AT A TIME, ON AND OFF THROUGHOUT DAY
     Route: 002

REACTIONS (4)
  - Inappropriate schedule of drug administration [Unknown]
  - Nicotine dependence [Not Recovered/Not Resolved]
  - Overdose [Unknown]
  - Stomatitis [Not Recovered/Not Resolved]
